FAERS Safety Report 8407055-8 (Version None)
Quarter: 2012Q2

REPORT INFORMATION
  Report Type: 
  Country: None (occurrence: None)
  Receive Date: 20120604
  Receipt Date: 20120530
  Transmission Date: 20120825
  Serious: Yes (Death, Hospitalization, Other)
  Sender: FDA-Public Use
  Company Number: PHHY2012FR046515

PATIENT
  Sex: Male

DRUGS (9)
  1. PLAVIX [Concomitant]
  2. RABEPRAZOLE SODIUM [Concomitant]
  3. FLAGYL [Concomitant]
  4. NIFLURIL [Concomitant]
  5. TAMSULOSIN HCL [Concomitant]
  6. RASILEZ HCT [Suspect]
     Dosage: 300/12.5 MG QD
     Dates: start: 20091201
  7. CIALIS [Concomitant]
  8. DIOSMINE [Concomitant]
  9. PHYSIOTENS [Concomitant]
     Dosage: 0.6 MG, DAILY

REACTIONS (3)
  - HAEMOTHORAX [None]
  - CHEST PAIN [None]
  - AORTIC DISSECTION [None]
